FAERS Safety Report 9675778 (Version 1)
Quarter: 2013Q4

REPORT INFORMATION
  Report Type: Spontaneous
  Country: US (occurrence: US)
  Receive Date: 20131107
  Receipt Date: 20131107
  Transmission Date: 20140711
  Serious: Yes (Other)
  Sender: FDA-Public Use
  Company Number: US-SHIRE-ALL1-2013-07559

PATIENT
  Sex: Male
  Weight: 45.35 kg

DRUGS (5)
  1. VYVANSE [Suspect]
     Indication: ATTENTION DEFICIT/HYPERACTIVITY DISORDER
     Dosage: UNK, 1X/DAY:QD
     Route: 048
  2. VYVANSE [Suspect]
     Dosage: 50 MG, 1X/DAY:QD
     Route: 048
     Dates: end: 2012
  3. VYVANSE [Suspect]
     Dosage: 60 MG, 1X/DAY:QD
     Route: 048
     Dates: start: 2012
  4. SINGULAIR [Concomitant]
     Indication: BRONCHIAL HYPERREACTIVITY
     Dosage: 5 MG, 1X/DAY:QD
     Route: 048
     Dates: start: 2005
  5. CLONIDINE [Concomitant]
     Indication: INSOMNIA
     Dosage: 0.1 MG, 1X/DAY:QD
     Route: 048
     Dates: start: 2007

REACTIONS (8)
  - Bipolar disorder [Not Recovered/Not Resolved]
  - Impulsive behaviour [Not Recovered/Not Resolved]
  - Disturbance in attention [Not Recovered/Not Resolved]
  - Memory impairment [Not Recovered/Not Resolved]
  - Increased appetite [Not Recovered/Not Resolved]
  - Drug effect incomplete [Recovered/Resolved]
  - Drug ineffective [Not Recovered/Not Resolved]
  - Product quality issue [Unknown]
